FAERS Safety Report 19017071 (Version 2)
Quarter: 2021Q1

REPORT INFORMATION
  Report Type: Spontaneous
  Country: TW (occurrence: TW)
  Receive Date: 20210316
  Receipt Date: 20210331
  Transmission Date: 20210420
  Serious: Yes (Hospitalization)
  Sender: FDA-Public Use
  Company Number: TW-PFIZER INC-2021242641

PATIENT
  Age: 70 Year
  Sex: Female

DRUGS (1)
  1. XELJANZ XR [Suspect]
     Active Substance: TOFACITINIB CITRATE
     Indication: RHEUMATOID ARTHRITIS
     Dosage: 11 MG, 1X/DAY
     Route: 048
     Dates: start: 20200615, end: 20210305

REACTIONS (4)
  - Fall [Recovering/Resolving]
  - Joint dislocation [Recovering/Resolving]
  - Road traffic accident [Recovering/Resolving]
  - Clavicle fracture [Recovering/Resolving]

NARRATIVE: CASE EVENT DATE: 20210305
